FAERS Safety Report 5064436-0 (Version None)
Quarter: 2006Q3

REPORT INFORMATION
  Report Type: 
  Country: None (occurrence: None)
  Receive Date: 20060728
  Receipt Date: 20060508
  Transmission Date: 20061208
  Serious: Yes (Other)
  Sender: FDA-Public Use
  Company Number: NL-AMGEN-UK178919

PATIENT
  Sex: Female
  Weight: 70 kg

DRUGS (6)
  1. NEULASTA [Suspect]
     Indication: CHEMOTHERAPY
     Route: 065
     Dates: start: 20060216
  2. RITUXIMAB [Concomitant]
     Route: 065
     Dates: start: 20060131
  3. CYCLOPHOSPHAMIDE [Concomitant]
     Route: 065
     Dates: start: 20060103
  4. ADRIAMYCIN PFS [Concomitant]
     Route: 065
     Dates: start: 20060103
  5. VINCRISTINE [Concomitant]
     Route: 065
     Dates: start: 20060103
  6. PREDNISONE TAB [Concomitant]
     Route: 065

REACTIONS (3)
  - BONE PAIN [None]
  - DRUG INEFFECTIVE [None]
  - PYREXIA [None]
